FAERS Safety Report 9543658 (Version 2)
Quarter: 2013Q3

REPORT INFORMATION
  Report Type: Spontaneous
  Country: JP (occurrence: JP)
  Receive Date: 20130923
  Receipt Date: 20130923
  Transmission Date: 20140515
  Serious: Yes (Hospitalization, Other)
  Sender: FDA-Public Use
  Company Number: JP-TAKEDA-TCI2013A03244

PATIENT
  Age: 64 Year
  Sex: Male
  Weight: 86.7 kg

DRUGS (6)
  1. NESINA TABLETS 25MG [Suspect]
     Indication: TYPE 2 DIABETES MELLITUS
     Dosage: 25 MG, QD
     Route: 048
     Dates: start: 2012, end: 20120710
  2. NESINA TABLETS 25MG [Suspect]
     Dosage: 25 MG, QD
     Route: 048
     Dates: start: 20120715, end: 20120813
  3. NESINA TABLETS 25MG [Suspect]
     Dosage: 25 MG, QD
     Route: 048
     Dates: start: 20120817, end: 201304
  4. JANUVIA [Suspect]
     Dosage: 50 MG, UNK
     Route: 048
     Dates: start: 201304, end: 20130428
  5. BLOPRESS [Concomitant]
     Dosage: UNK
     Route: 048
     Dates: end: 20120817
  6. LASIX [Concomitant]
     Route: 065
     Dates: end: 20120817

REACTIONS (11)
  - Pancreatitis acute [Recovered/Resolved]
  - Back pain [Recovered/Resolved]
  - Pancreatic enlargement [Recovered/Resolved]
  - Pancreatitis acute [Recovered/Resolved]
  - Epigastric discomfort [Recovered/Resolved]
  - Musculoskeletal discomfort [Recovered/Resolved]
  - Pancreatitis acute [Recovered/Resolved]
  - Musculoskeletal discomfort [Recovered/Resolved]
  - Amylase increased [Recovered/Resolved]
  - Amylase increased [Recovered/Resolved]
  - Lipase increased [Recovered/Resolved]
